FAERS Safety Report 11676738 (Version 3)
Quarter: 2015Q4

REPORT INFORMATION
  Report Type: Spontaneous
  Country: PT (occurrence: PT)
  Receive Date: 20151028
  Receipt Date: 20151130
  Transmission Date: 20160304
  Serious: Yes (Hospitalization, Disabling, Other)
  Sender: FDA-Public Use
  Company Number: PT-GILEAD-2015-0177996

PATIENT
  Age: 71 Year
  Sex: Female
  Weight: 66 kg

DRUGS (7)
  1. ULTRAMIDOL [Concomitant]
     Indication: INSOMNIA
     Route: 048
  2. AMILORIDE 5 + HIDROCLOROTIAZID 50 RATIOPHARM [Interacting]
     Active Substance: AMILORIDE HYDROCHLORIDE\HYDROCHLOROTHIAZIDE
     Indication: HYPERTENSION
     Dosage: 1 DF, QD
     Route: 048
     Dates: start: 20150908, end: 20151006
  3. HARVONI [Suspect]
     Active Substance: LEDIPASVIR\SOFOSBUVIR
     Indication: HEPATITIS C
     Dosage: 1 DF, QD
     Route: 048
     Dates: start: 20150904
  4. ULTRAMIDOL [Concomitant]
     Route: 048
  5. ZANICOR [Concomitant]
     Indication: HYPERTENSION
     Route: 048
     Dates: start: 20150908
  6. HERBESSER 90 [Concomitant]
     Indication: HYPERTENSION
     Route: 048
     Dates: start: 2009, end: 20150907
  7. OLSAR PLUS [Concomitant]
     Active Substance: HYDROCHLOROTHIAZIDE\OLMESARTAN MEDOXOMIL
     Indication: HYPERTENSION
     Route: 048
     Dates: start: 2009, end: 20150907

REACTIONS (10)
  - Syncope [Recovered/Resolved]
  - Confusional state [Recovered/Resolved]
  - Fatigue [Recovered/Resolved]
  - Renal failure [Recovered/Resolved]
  - Tremor [Recovered/Resolved]
  - Head discomfort [Recovered/Resolved]
  - Blood potassium increased [Recovered/Resolved]
  - Drug interaction [Unknown]
  - Blood pressure increased [Recovered/Resolved]
  - Blood urea increased [Recovered/Resolved]

NARRATIVE: CASE EVENT DATE: 20150905
